FAERS Safety Report 23033113 (Version 1)
Quarter: 2023Q4

REPORT INFORMATION
  Report Type: Report from Study
  Country: SE (occurrence: SE)
  Receive Date: 20231005
  Receipt Date: 20231005
  Transmission Date: 20240110
  Serious: Yes (Hospitalization)
  Sender: FDA-Public Use
  Company Number: SE-PFIZER INC-202201091563

PATIENT
  Age: 61 Year
  Sex: Female
  Weight: 53.9 kg

DRUGS (12)
  1. ELRANATAMAB [Suspect]
     Active Substance: ELRANATAMAB
     Indication: Plasma cell myeloma
     Dosage: 76.0 MG, EVERY 2 WEEKS
     Route: 058
     Dates: start: 20220207
  2. DARATUMUMAB [Suspect]
     Active Substance: DARATUMUMAB
     Indication: Plasma cell myeloma
     Dosage: 1800 MG, EVERY 4 WEEKS
     Route: 058
     Dates: start: 20220223
  3. OMEPRAZOLE [Concomitant]
     Active Substance: OMEPRAZOLE
     Dosage: 20 MG, 1X/DAY
     Dates: start: 20211005
  4. ACYCLOVIR [Concomitant]
     Active Substance: ACYCLOVIR
     Indication: Prophylaxis
     Dosage: 400 MG, 2X/DAY
     Dates: start: 20210913
  5. HYDROXYZINE [Concomitant]
     Active Substance: HYDROXYZINE HYDROCHLORIDE
     Indication: Pruritus
     Dosage: 25 MG, AS NEEDED
     Dates: start: 20220223
  6. UREA [Concomitant]
     Active Substance: UREA
     Indication: Dry skin
     Dosage: 5 %
     Route: 003
     Dates: start: 20220309
  7. CETIRIZINE HYDROCHLORIDE [Concomitant]
     Active Substance: CETIRIZINE HYDROCHLORIDE
     Indication: Anger
     Dosage: 10 MG, 2X/DAY
     Dates: start: 20220309
  8. ACETAMINOPHEN [Concomitant]
     Active Substance: ACETAMINOPHEN
     Indication: Pyrexia
     Dosage: 1000 MG, AS NEEDED
     Dates: start: 20220401
  9. BUDESONIDE [Concomitant]
     Active Substance: BUDESONIDE
     Indication: Sinus disorder
     Dosage: 400 MG
     Route: 045
     Dates: start: 20220504
  10. POTASSIUM CHLORIDE [Concomitant]
     Active Substance: POTASSIUM CHLORIDE
     Indication: Blood potassium decreased
     Dosage: 750 MG, 1X/DAY
     Dates: start: 20220511
  11. ATOVAQUONE [Concomitant]
     Active Substance: ATOVAQUONE
     Indication: Antifungal prophylaxis
     Dosage: 5 ML, 2X/DAY
     Dates: start: 20220518
  12. MOMETASONE FUROATE MONOHYDRATE [Concomitant]
     Active Substance: MOMETASONE FUROATE MONOHYDRATE
     Indication: Sinus disorder
     Dosage: 2 PUFF, 1X/DAY
     Dates: start: 20220622

REACTIONS (1)
  - Encephalopathy [Not Recovered/Not Resolved]

NARRATIVE: CASE EVENT DATE: 20220819
